FAERS Safety Report 9912158 (Version 1)
Quarter: 2014Q1

REPORT INFORMATION
  Report Type: Spontaneous
  Country: NL (occurrence: NL)
  Receive Date: 20140220
  Receipt Date: 20140220
  Transmission Date: 20141002
  Serious: Yes (Life-Threatening, Hospitalization, Other)
  Sender: FDA-Public Use
  Company Number: NL-BRISTOL-MYERS SQUIBB COMPANY-20187605

PATIENT
  Age: 38 Year
  Sex: Male
  Weight: 75 kg

DRUGS (6)
  1. ETOPOSIDE [Suspect]
     Indication: TESTIS CANCER
     Dosage: THIRD COURSE IN 10-JAN-2014 20MG/ML ,EVERY 1-5 DAYS
     Dates: start: 201311
  2. CISPLATIN [Suspect]
     Indication: TESTIS CANCER
     Dosage: THIRD COURSE 10-JAN-2014 AT DOSE OF 42MG EVERY 1-5 DAYS;II COURSE DEC2013
     Dates: start: 201311
  3. BLEOMYCIN [Suspect]
     Indication: TESTIS CANCER
     Dosage: 2ND COURSE DEC-2013; 3RD COURSE 11-JAN-2014 15 USP-E
     Dates: start: 201311
  4. OMEPRAZOLE [Concomitant]
     Dosage: OMEPRAZOLE 20MG CAPS
  5. DEXPANTHENOL [Concomitant]
  6. ANDROGEL [Concomitant]
     Dosage: SACHET

REACTIONS (2)
  - Cerebral infarction [Recovering/Resolving]
  - Arterial thrombosis [Recovering/Resolving]
